FAERS Safety Report 8028689-9 (Version None)
Quarter: 2012Q1

REPORT INFORMATION
  Report Type: 
  Country: None (occurrence: None)
  Receive Date: 20120106
  Receipt Date: 20111230
  Transmission Date: 20120608
  Serious: Yes (Hospitalization)
  Sender: FDA-Public Use
  Company Number: US-ABBOTT-12P-163-0888345-00

PATIENT
  Sex: Female
  Weight: 51.302 kg

DRUGS (1)
  1. HUMIRA [Suspect]
     Indication: RHEUMATOID ARTHRITIS
     Dates: start: 20100601

REACTIONS (4)
  - RENAL MASS [None]
  - ABDOMINAL PAIN LOWER [None]
  - PULMONARY MASS [None]
  - ABDOMINAL PAIN UPPER [None]
